FAERS Safety Report 4835939-6 (Version None)
Quarter: 2005Q4

REPORT INFORMATION
  Report Type: 
  Country: None (occurrence: None)
  Receive Date: 20051118
  Receipt Date: 20051107
  Transmission Date: 20060501
  Serious: Yes (Other)
  Sender: FDA-Public Use
  Company Number: B0399718A

PATIENT
  Age: 31 Year
  Sex: Male

DRUGS (1)
  1. MALARONE [Suspect]
     Indication: MALARIA PROPHYLAXIS

REACTIONS (2)
  - HEPATITIS ACUTE [None]
  - SERUM FERRITIN INCREASED [None]
